FAERS Safety Report 11745655 (Version 2)
Quarter: 2015Q4

REPORT INFORMATION
  Report Type: Spontaneous
  Country: JP (occurrence: JP)
  Receive Date: 20151117
  Receipt Date: 20151210
  Transmission Date: 20160304
  Serious: Yes (Death)
  Sender: FDA-Public Use
  Company Number: JP-AMGEN-JPNSP2015121389

PATIENT
  Sex: Male

DRUGS (1)
  1. NESP [Suspect]
     Active Substance: DARBEPOETIN ALFA
     Indication: NEPHROGENIC ANAEMIA
     Dosage: 120 MUG, QMO
     Route: 058
     Dates: start: 2015, end: 2015

REACTIONS (1)
  - Pharyngeal cancer [Fatal]

NARRATIVE: CASE EVENT DATE: 2015
